FAERS Safety Report 13413332 (Version 9)
Quarter: 2023Q4

REPORT INFORMATION
  Report Type: Spontaneous
  Country: US (occurrence: US)
  Receive Date: 20170406
  Receipt Date: 20231124
  Transmission Date: 20240110
  Serious: No
  Sender: FDA-Public Use
  Company Number: US-JNJFOC-20170316555

PATIENT
  Age: 18 Year
  Sex: Male

DRUGS (22)
  1. RISPERDAL [Suspect]
     Active Substance: RISPERIDONE
     Indication: Attention deficit hyperactivity disorder
     Route: 048
     Dates: start: 20090806
  2. RISPERDAL [Suspect]
     Active Substance: RISPERIDONE
     Indication: Depression
     Dosage: VARYING DOSES OF 1 MG, 2MG AND VARYING FREQUENCY OF ONCE EVERY MORNING AND EVERY NIGHT AT BED TIME
     Route: 048
     Dates: start: 20100527
  3. RISPERDAL [Suspect]
     Active Substance: RISPERIDONE
     Indication: Psychotic disorder
     Route: 048
     Dates: end: 20130729
  4. RISPERDAL [Suspect]
     Active Substance: RISPERIDONE
     Indication: Schizophrenia
     Route: 048
     Dates: end: 20140528
  5. RISPERDAL CONSTA [Suspect]
     Active Substance: RISPERIDONE
     Indication: Attention deficit hyperactivity disorder
     Dosage: VARYING DOSES OF 25 MG, 37.5 MG
     Route: 030
     Dates: start: 20090806, end: 20130225
  6. RISPERDAL CONSTA [Suspect]
     Active Substance: RISPERIDONE
     Indication: Depression
  7. RISPERDAL CONSTA [Suspect]
     Active Substance: RISPERIDONE
     Indication: Psychotic disorder
  8. RISPERDAL CONSTA [Suspect]
     Active Substance: RISPERIDONE
     Indication: Schizophrenia
  9. RISPERIDONE [Suspect]
     Active Substance: RISPERIDONE
     Indication: Attention deficit hyperactivity disorder
     Dosage: VARYING DOSES OF 1MG, 2 MG,  3MG
     Route: 048
     Dates: start: 20090807, end: 20110927
  10. RISPERIDONE [Suspect]
     Active Substance: RISPERIDONE
     Indication: Depression
  11. RISPERIDONE [Suspect]
     Active Substance: RISPERIDONE
     Indication: Psychotic disorder
  12. RISPERIDONE [Suspect]
     Active Substance: RISPERIDONE
     Indication: Schizophrenia
  13. INVEGA SUSTENNA [Suspect]
     Active Substance: PALIPERIDONE PALMITATE
     Indication: Attention deficit hyperactivity disorder
     Route: 030
     Dates: start: 20130409, end: 20130729
  14. INVEGA SUSTENNA [Suspect]
     Active Substance: PALIPERIDONE PALMITATE
     Indication: Depression
     Route: 030
     Dates: start: 2013, end: 20131101
  15. INVEGA SUSTENNA [Suspect]
     Active Substance: PALIPERIDONE PALMITATE
     Indication: Psychotic disorder
  16. INVEGA SUSTENNA [Suspect]
     Active Substance: PALIPERIDONE PALMITATE
     Indication: Schizophrenia
  17. ABILIFY [Suspect]
     Active Substance: ARIPIPRAZOLE
     Indication: Product used for unknown indication
     Route: 065
     Dates: start: 2018
  18. PROZAC [Suspect]
     Active Substance: FLUOXETINE HYDROCHLORIDE
     Indication: Product used for unknown indication
     Route: 065
  19. ALBUTEROL SULFATE [Suspect]
     Active Substance: ALBUTEROL SULFATE
     Indication: Product used for unknown indication
     Route: 065
  20. SEROQUEL [Suspect]
     Active Substance: QUETIAPINE FUMARATE
     Indication: Mental disorder
     Dates: start: 200906, end: 200907
  21. SEROQUEL [Suspect]
     Active Substance: QUETIAPINE FUMARATE
     Dosage: 100 MG DAY AND 200 MG NIGHT
     Dates: start: 200907
  22. SEROQUEL [Suspect]
     Active Substance: QUETIAPINE FUMARATE
     Dates: start: 200908

REACTIONS (8)
  - Emotional distress [Unknown]
  - Hyperprolactinaemia [Unknown]
  - Sedation [Unknown]
  - Injection site pain [Unknown]
  - Fatigue [Recovering/Resolving]
  - Drug ineffective [Unknown]
  - Inappropriate schedule of product administration [Unknown]
  - Treatment noncompliance [Unknown]

NARRATIVE: CASE EVENT DATE: 20100916
